FAERS Safety Report 14882705 (Version 1)
Quarter: 2018Q2

REPORT INFORMATION
  Report Type: Spontaneous
  Country: BR (occurrence: BR)
  Receive Date: 20180511
  Receipt Date: 20180511
  Transmission Date: 20180711
  Serious: Yes (Other)
  Sender: FDA-Public Use
  Company Number: BR-TEVA-2018-BR-890520

PATIENT
  Sex: Female
  Weight: 49 kg

DRUGS (1)
  1. ACTONEL [Suspect]
     Active Substance: RISEDRONATE SODIUM
     Indication: VITAMIN SUPPLEMENTATION
     Dosage: ACTONEL / RISEDRONATE SODIUM / 35 MG 4 TABLETS
     Route: 048
     Dates: start: 2017, end: 201804

REACTIONS (2)
  - Heart rate increased [Not Recovered/Not Resolved]
  - Arrhythmia [Not Recovered/Not Resolved]
